FAERS Safety Report 8239004 (Version 4)
Quarter: 2012Q4

REPORT INFORMATION
  Report Type: Report from Study
  Country: DK (occurrence: DK)
  Receive Date: 20111110
  Receipt Date: 20120914
  Transmission Date: 20130627
  Serious: Yes (Other)
  Sender: FDA-Public Use
  Company Number: DK-CELGENEUS-044-C5013-11110006

PATIENT
  Age: 71 None
  Sex: Male

DRUGS (17)
  1. CC-5013 [Suspect]
     Indication: MULTIPLE MYELOMA
     Route: 048
     Dates: start: 20071109, end: 20080314
  2. CC-5013 [Suspect]
     Route: 048
     Dates: start: 20091019, end: 20100615
  3. CC-5013 [Suspect]
     Route: 048
     Dates: start: 20101022, end: 20110527
  4. ALKERAN [Suspect]
     Indication: MULTIPLE MYELOMA
     Route: 065
     Dates: start: 20071109, end: 20080314
  5. PREDNISONE [Suspect]
     Indication: MULTIPLE MYELOMA
     Route: 065
     Dates: start: 20071109, end: 20080314
  6. DEXAMETHASONE [Suspect]
     Indication: MULTIPLE MYELOMA
     Route: 065
     Dates: start: 20080421, end: 20080808
  7. DEXAMETHASONE [Suspect]
     Route: 065
     Dates: start: 20091019, end: 20100615
  8. DEXAMETHASONE [Suspect]
     Route: 065
     Dates: start: 20101022, end: 20110527
  9. DOXORUBICIN [Suspect]
     Indication: MULTIPLE MYELOMA
     Route: 065
     Dates: start: 20080421, end: 20080808
  10. DOXORUBICIN [Suspect]
     Route: 065
     Dates: start: 20091019, end: 20100615
  11. CYCLOPHOSPHAMIDE [Suspect]
     Indication: MULTIPLE MYELOMA
     Route: 065
     Dates: start: 20080421, end: 20080808
  12. CYCLOPHOSPHAMIDE [Suspect]
     Route: 065
     Dates: start: 20091019, end: 20100615
  13. BORTEZOMIB [Suspect]
     Indication: MULTIPLE MYELOMA
     Route: 065
     Dates: start: 20080421, end: 20080808
  14. BORTEZOMIB [Suspect]
     Route: 065
     Dates: start: 20091019, end: 20100615
  15. METFORMIN [Concomitant]
     Indication: DRUG USE FOR UNKNOWN INDICATION
     Route: 065
     Dates: end: 20111031
  16. SIMVASTATIN [Concomitant]
     Indication: DRUG USE FOR UNKNOWN INDICATION
     Route: 065
  17. INSULIN [Concomitant]
     Indication: DRUG USE FOR UNKNOWN INDICATION
     Route: 065
     Dates: start: 20111031

REACTIONS (1)
  - Squamous cell carcinoma of skin [Recovered/Resolved]
